FAERS Safety Report 23352482 (Version 1)
Quarter: 2023Q4

REPORT INFORMATION
  Report Type: Spontaneous
  Country: JP (occurrence: JP)
  Receive Date: 20231229
  Receipt Date: 20231229
  Transmission Date: 20240109
  Serious: Yes (Life-Threatening, Other)
  Sender: FDA-Public Use
  Company Number: JP-Merck Healthcare KGaA-2023496484

PATIENT
  Age: 89 Year
  Sex: Female
  Weight: 36 kg

DRUGS (11)
  1. METFORMIN HYDROCHLORIDE [Suspect]
     Active Substance: METFORMIN HYDROCHLORIDE
     Indication: Type 2 diabetes mellitus
     Route: 048
  2. AMLODIPINE BESYLATE\VALSARTAN [Suspect]
     Active Substance: AMLODIPINE BESYLATE\VALSARTAN
     Indication: Hypertension
  3. ESAXERENONE [Suspect]
     Active Substance: ESAXERENONE
     Indication: Hypertension
     Route: 048
  4. CIMETIDINE [Suspect]
     Active Substance: CIMETIDINE
     Indication: Gastric ulcer
     Route: 048
  5. ASPIRIN [Suspect]
     Active Substance: ASPIRIN
     Indication: Hypertension
     Route: 048
  6. REBAMIPIDE [Suspect]
     Active Substance: REBAMIPIDE
     Indication: Gastric ulcer
     Route: 048
  7. CALCIUM ASPARTATE [Suspect]
     Active Substance: CALCIUM ASPARTATE
     Indication: Hypocalcaemia
     Route: 048
  8. ALFACALCIDOL [Suspect]
     Active Substance: ALFACALCIDOL
     Indication: Product used for unknown indication
     Dosage: 1.ORG
     Route: 048
  9. TOSUFLOXACIN [Suspect]
     Active Substance: TOSUFLOXACIN
     Indication: Product used for unknown indication
     Route: 048
  10. MOSAPRIDE [Suspect]
     Active Substance: MOSAPRIDE
     Indication: Product used for unknown indication
     Route: 048
  11. ALBUMIN TANNATE [Suspect]
     Active Substance: ALBUMIN TANNATE
     Indication: Product used for unknown indication
     Route: 048

REACTIONS (28)
  - Septic shock [Unknown]
  - Pneumonia [Unknown]
  - Enteritis [Unknown]
  - Urinary tract infection [Unknown]
  - Lactic acidosis [Recovered/Resolved]
  - Acute kidney injury [Unknown]
  - Cerebral infarction [Unknown]
  - Diabetes mellitus inadequate control [Unknown]
  - Cognitive disorder [Unknown]
  - Cerebral atrophy [Unknown]
  - Pleural effusion [Unknown]
  - Arteriosclerosis [Unknown]
  - Adrenal adenoma [Unknown]
  - Renal cyst [Unknown]
  - Activated partial thromboplastin time prolonged [Unknown]
  - Fibrin degradation products increased [Unknown]
  - Blood potassium increased [Unknown]
  - Blood calcium increased [Unknown]
  - Red blood cell count decreased [Unknown]
  - Procalcitonin increased [Unknown]
  - Haematocrit decreased [Unknown]
  - Haemoglobin decreased [Unknown]
  - Blood chloride increased [Unknown]
  - Protein total decreased [Unknown]
  - Blood alkaline phosphatase increased [Unknown]
  - Gamma-glutamyltransferase increased [Unknown]
  - Aspartate aminotransferase increased [Unknown]
  - Contraindicated product administered [Unknown]

NARRATIVE: CASE EVENT DATE: 20230712
